FAERS Safety Report 9227903 (Version 5)
Quarter: 2013Q4

REPORT INFORMATION
  Report Type: Report from Study
  Country: ES (occurrence: ES)
  Receive Date: 20130412
  Receipt Date: 20131119
  Transmission Date: 20140711
  Serious: Yes (Hospitalization)
  Sender: FDA-Public Use
  Company Number: ES-BAYER-2013-044097

PATIENT
  Sex: Male
  Weight: 104.31 kg

DRUGS (4)
  1. REGORAFENIB [Suspect]
     Indication: COLORECTAL CANCER METASTATIC
     Dosage: DAILY DOSE 160 MG
     Route: 048
     Dates: start: 20130215, end: 20130326
  2. REGORAFENIB [Suspect]
     Indication: COLORECTAL CANCER METASTATIC
     Dosage: DAILY DOSE 160 MG
     Route: 048
     Dates: start: 20130215, end: 20130327
  3. REGORAFENIB [Suspect]
     Indication: COLORECTAL CANCER METASTATIC
     Dosage: DAILY DOSE 160 MG
     Route: 048
     Dates: start: 20130215, end: 20130327
  4. DEXKETOPROFEN [Concomitant]
     Indication: TUMOUR PAIN
     Dosage: DAILY DOSE 75 MG
     Route: 042
     Dates: start: 201202

REACTIONS (1)
  - Hepatic encephalopathy [Recovered/Resolved]
